FAERS Safety Report 6961198-4 (Version None)
Quarter: 2010Q3

REPORT INFORMATION
  Report Type: 
  Country: None (occurrence: None)
  Receive Date: 20100901
  Receipt Date: 20100820
  Transmission Date: 20110219
  Serious: Yes (Other)
  Sender: FDA-Public Use
  Company Number: BR-PFIZER INC-2010105381

PATIENT
  Age: 30 Year
  Sex: Male
  Weight: 75 kg

DRUGS (4)
  1. CHAMPIX [Suspect]
     Indication: TOBACCO ABUSE
     Dosage: 0.5 MG, UNK
     Route: 048
     Dates: start: 20100720, end: 20100701
  2. CHAMPIX [Suspect]
     Dosage: 0.5 MG, 2X/DAY, EVERY 12 HOURS
     Route: 048
     Dates: start: 20100701
  3. CHAMPIX [Suspect]
     Dosage: 1 MG, 2X/DAY
  4. VALSARTAN [Concomitant]
     Indication: HYPERTENSION
     Dosage: 160 MG
     Dates: start: 20020101

REACTIONS (6)
  - ANXIETY [None]
  - CHEST DISCOMFORT [None]
  - CONFUSIONAL STATE [None]
  - DEPRESSED MOOD [None]
  - MEMORY IMPAIRMENT [None]
  - TACHYPHRENIA [None]
